FAERS Safety Report 13112698 (Version 1)
Quarter: 2017Q1

REPORT INFORMATION
  Report Type: Report from Study
  Country: US (occurrence: US)
  Receive Date: 20170113
  Receipt Date: 20170113
  Transmission Date: 20170428
  Serious: Yes (Other)
  Sender: FDA-Public Use
  Company Number: US-ROCHE-1874354

PATIENT

DRUGS (49)
  1. OBINUTUZUMAB [Suspect]
     Active Substance: OBINUTUZUMAB
     Indication: NEOPLASM MALIGNANT
  2. DACLATASVIR. [Interacting]
     Active Substance: DACLATASVIR
     Indication: NEOPLASM MALIGNANT
  3. CYCLOPHOSPHAMIDE. [Suspect]
     Active Substance: CYCLOPHOSPHAMIDE
     Indication: NEOPLASM MALIGNANT
  4. DOXORUBICIN [Suspect]
     Active Substance: DOXORUBICIN
     Indication: CHRONIC HEPATITIS C
     Route: 065
  5. GEMCITABINE [Suspect]
     Active Substance: GEMCITABINE\GEMCITABINE HYDROCHLORIDE
     Indication: NEOPLASM MALIGNANT
  6. PERTUZUMAB [Suspect]
     Active Substance: PERTUZUMAB
     Indication: NEOPLASM MALIGNANT
  7. OXALIPLATIN. [Suspect]
     Active Substance: OXALIPLATIN
     Indication: CHRONIC HEPATITIS C
     Route: 065
  8. DOXORUBICIN [Suspect]
     Active Substance: DOXORUBICIN
     Indication: NEOPLASM MALIGNANT
  9. HYDROXYUREA. [Suspect]
     Active Substance: HYDROXYUREA
     Indication: CHRONIC HEPATITIS C
     Route: 065
  10. LENALIDOMIDE [Suspect]
     Active Substance: LENALIDOMIDE
     Indication: NEOPLASM MALIGNANT
  11. TRASTUZUMAB [Suspect]
     Active Substance: TRASTUZUMAB
     Indication: CHRONIC HEPATITIS C
     Route: 065
  12. LEDIPASVIR [Interacting]
     Active Substance: LEDIPASVIR
     Indication: NEOPLASM MALIGNANT
  13. CYCLOPHOSPHAMIDE. [Suspect]
     Active Substance: CYCLOPHOSPHAMIDE
     Indication: CHRONIC HEPATITIS C
     Route: 065
  14. OXALIPLATIN. [Suspect]
     Active Substance: OXALIPLATIN
     Indication: NEOPLASM MALIGNANT
  15. RIBAVIRIN. [Suspect]
     Active Substance: RIBAVIRIN
     Indication: NEOPLASM MALIGNANT
  16. OBINUTUZUMAB [Suspect]
     Active Substance: OBINUTUZUMAB
     Indication: CHRONIC HEPATITIS C
     Route: 065
  17. TRASTUZUMAB [Suspect]
     Active Substance: TRASTUZUMAB
     Indication: NEOPLASM MALIGNANT
  18. RITUXIMAB [Suspect]
     Active Substance: RITUXIMAB
     Indication: NEOPLASM MALIGNANT
  19. SOFOSBUVIR [Interacting]
     Active Substance: SOFOSBUVIR
     Indication: CHRONIC HEPATITIS C
     Route: 065
  20. LEDIPASVIR [Interacting]
     Active Substance: LEDIPASVIR
     Indication: CHRONIC HEPATITIS C
     Route: 065
  21. IRINOTECAN [Suspect]
     Active Substance: IRINOTECAN
     Indication: NEOPLASM MALIGNANT
  22. BENDAMUSTINE [Suspect]
     Active Substance: BENDAMUSTINE
     Indication: CHRONIC HEPATITIS C
     Route: 065
  23. SORAFENIB [Suspect]
     Active Substance: SORAFENIB
     Indication: CHRONIC HEPATITIS C
     Route: 065
  24. ANASTROZOLE. [Suspect]
     Active Substance: ANASTROZOLE
     Indication: NEOPLASM MALIGNANT
  25. LENALIDOMIDE [Suspect]
     Active Substance: LENALIDOMIDE
     Indication: CHRONIC HEPATITIS C
     Route: 065
  26. DEXAMETHASONE. [Interacting]
     Active Substance: DEXAMETHASONE
     Indication: NEOPLASM MALIGNANT
     Route: 065
  27. RIBAVIRIN. [Suspect]
     Active Substance: RIBAVIRIN
     Indication: CHRONIC HEPATITIS C
     Route: 065
  28. RITUXIMAB [Suspect]
     Active Substance: RITUXIMAB
     Indication: CHRONIC HEPATITIS C
     Route: 065
  29. HYDROXYUREA. [Suspect]
     Active Substance: HYDROXYUREA
     Indication: NEOPLASM MALIGNANT
  30. TACROLIMUS. [Suspect]
     Active Substance: TACROLIMUS
     Indication: NEOPLASM MALIGNANT
  31. BORTEZOMIB [Suspect]
     Active Substance: BORTEZOMIB
     Indication: CHRONIC HEPATITIS C
     Route: 065
  32. SIMEPREVIR [Interacting]
     Active Substance: SIMEPREVIR
     Indication: NEOPLASM MALIGNANT
  33. IRINOTECAN [Suspect]
     Active Substance: IRINOTECAN
     Indication: CHRONIC HEPATITIS C
     Route: 065
  34. TAMOXIFEN [Suspect]
     Active Substance: TAMOXIFEN
     Indication: NEOPLASM MALIGNANT
  35. ANASTROZOLE. [Suspect]
     Active Substance: ANASTROZOLE
     Indication: CHRONIC HEPATITIS C
     Route: 065
  36. 5-FLUOROURACIL [Suspect]
     Active Substance: FLUOROURACIL
     Indication: CHRONIC HEPATITIS C
     Route: 065
  37. 5-FLUOROURACIL [Suspect]
     Active Substance: FLUOROURACIL
     Indication: NEOPLASM MALIGNANT
  38. BORTEZOMIB [Suspect]
     Active Substance: BORTEZOMIB
     Indication: NEOPLASM MALIGNANT
  39. PERTUZUMAB [Suspect]
     Active Substance: PERTUZUMAB
     Indication: CHRONIC HEPATITIS C
     Route: 065
  40. BEVACIZUMAB [Suspect]
     Active Substance: BEVACIZUMAB
     Indication: NEOPLASM MALIGNANT
  41. SIMEPREVIR [Interacting]
     Active Substance: SIMEPREVIR
     Indication: CHRONIC HEPATITIS C
     Route: 065
  42. DACLATASVIR. [Interacting]
     Active Substance: DACLATASVIR
     Indication: CHRONIC HEPATITIS C
     Route: 065
  43. TAMOXIFEN [Suspect]
     Active Substance: TAMOXIFEN
     Indication: CHRONIC HEPATITIS C
     Route: 065
  44. GEMCITABINE [Suspect]
     Active Substance: GEMCITABINE\GEMCITABINE HYDROCHLORIDE
     Indication: CHRONIC HEPATITIS C
     Route: 065
  45. BEVACIZUMAB [Suspect]
     Active Substance: BEVACIZUMAB
     Indication: CHRONIC HEPATITIS C
     Route: 065
  46. SOFOSBUVIR [Interacting]
     Active Substance: SOFOSBUVIR
     Indication: NEOPLASM MALIGNANT
  47. BENDAMUSTINE [Suspect]
     Active Substance: BENDAMUSTINE
     Indication: NEOPLASM MALIGNANT
  48. SORAFENIB [Suspect]
     Active Substance: SORAFENIB
     Indication: NEOPLASM MALIGNANT
  49. TACROLIMUS. [Suspect]
     Active Substance: TACROLIMUS
     Indication: CHRONIC HEPATITIS C
     Route: 065

REACTIONS (35)
  - Odynophagia [Unknown]
  - Thrombocytopenia [Unknown]
  - Headache [Unknown]
  - Nausea [Unknown]
  - Depression [Unknown]
  - Panic attack [Unknown]
  - Constipation [Unknown]
  - Rectal haemorrhage [Unknown]
  - Confusional state [Unknown]
  - Neuropathy peripheral [Unknown]
  - Mood altered [Unknown]
  - Neutropenia [Unknown]
  - Fatigue [Unknown]
  - Pruritus [Unknown]
  - Decreased appetite [Unknown]
  - Asthenia [Unknown]
  - Paraesthesia [Unknown]
  - Weight decreased [Unknown]
  - Dysgeusia [Unknown]
  - Vomiting [Unknown]
  - Anaemia [Unknown]
  - Deafness [Unknown]
  - Myalgia [Unknown]
  - Diarrhoea [Unknown]
  - Bone marrow toxicity [Unknown]
  - Memory impairment [Unknown]
  - Vision blurred [Unknown]
  - Dry skin [Unknown]
  - Drug interaction [Unknown]
  - Insomnia [Unknown]
  - Pyrexia [Unknown]
  - Influenza like illness [Unknown]
  - Abdominal distension [Unknown]
  - Dysphagia [Unknown]
  - Hypoaesthesia [Unknown]
